FAERS Safety Report 23105825 (Version 1)
Quarter: 2023Q4

REPORT INFORMATION
  Report Type: Report from Study
  Country: DE (occurrence: DE)
  Receive Date: 20231025
  Receipt Date: 20231025
  Transmission Date: 20240109
  Serious: Yes (Other)
  Sender: FDA-Public Use
  Company Number: DE-002147023-NVSC2023DE226283

PATIENT
  Age: 44 Year
  Sex: Female

DRUGS (2)
  1. MEKINIST [Suspect]
     Active Substance: TRAMETINIB DIMETHYL SULFOXIDE
     Indication: Malignant melanoma
     Dosage: UNK
     Route: 065
     Dates: start: 201903, end: 201907
  2. TAFINLAR [Suspect]
     Active Substance: DABRAFENIB MESYLATE
     Indication: Malignant melanoma
     Dosage: UNK
     Route: 065
     Dates: start: 201903, end: 201907

REACTIONS (15)
  - Major depression [Unknown]
  - Scar pain [Unknown]
  - Fibromyalgia [Unknown]
  - Anxiety [Unknown]
  - Fear of death [Unknown]
  - Decreased interest [Unknown]
  - Fatigue [Unknown]
  - Arthralgia [Unknown]
  - Rash [Unknown]
  - Pruritus [Unknown]
  - Nausea [Unknown]
  - Pyrexia [Unknown]
  - Colitis [Unknown]
  - Social fear [Unknown]
  - General physical health deterioration [Unknown]
